FAERS Safety Report 10677983 (Version 2)
Quarter: 2015Q1

REPORT INFORMATION
  Report Type: Spontaneous
  Country: US (occurrence: None)
  Receive Date: 20141223
  Receipt Date: 20150114
  Transmission Date: 20150720
  Serious: Yes (Hospitalization, Other)
  Sender: FDA-Public Use
  Company Number: 2014-US-016520

PATIENT
  Age: 55 Year
  Sex: Female
  Weight: 98 kg

DRUGS (17)
  1. BENAZEPRIL [Concomitant]
     Active Substance: BENAZEPRIL\BENAZEPRIL HYDROCHLORIDE
  2. HYDROMORPHONE [Concomitant]
     Active Substance: HYDROMORPHONE
  3. LEVOTHYROXINE SODIUM. [Concomitant]
     Active Substance: LEVOTHYROXINE SODIUM
  4. ADDERALL [Concomitant]
     Active Substance: AMPHETAMINE ASPARTATE\AMPHETAMINE SULFATE\DEXTROAMPHETAMINE SACCHARATE\DEXTROAMPHETAMINE SULFATE
  5. DIAZEPAM. [Concomitant]
     Active Substance: DIAZEPAM
  6. MELOXICAM. [Concomitant]
     Active Substance: MELOXICAM
  7. TRIAMTERENE AND HYDROCHLOROTHIAZIDE [Concomitant]
     Active Substance: HYDROCHLOROTHIAZIDE\TRIAMTERENE
  8. LUVOX CR [Suspect]
     Active Substance: FLUVOXAMINE MALEATE
     Indication: PRODUCT USED FOR UNKNOWN INDICATION
     Dosage: 1 CAPSULE, QD, ORAL
     Route: 048
  9. GABAPENTIN. [Concomitant]
     Active Substance: GABAPENTIN
  10. METHYLPHENIDATE [Concomitant]
     Active Substance: METHYLPHENIDATE
  11. XYREM [Suspect]
     Active Substance: SODIUM OXYBATE
     Indication: SOMNOLENCE
     Route: 048
     Dates: start: 20120127, end: 2012
  12. LAMOTRIGINE. [Concomitant]
     Active Substance: LAMOTRIGINE
  13. ABILIFY [Concomitant]
     Active Substance: ARIPIPRAZOLE
  14. KLONOPIN [Concomitant]
     Active Substance: CLONAZEPAM
  15. METHOCARBAMOL. [Concomitant]
     Active Substance: METHOCARBAMOL
  16. NUVIGIL [Concomitant]
     Active Substance: ARMODAFINIL
  17. MORPHINE SULFATE. [Concomitant]
     Active Substance: MORPHINE SULFATE

REACTIONS (10)
  - Balance disorder [None]
  - Osteopenia [None]
  - Pneumonia [None]
  - Fall [None]
  - Weight increased [None]
  - Left ventricular hypertrophy [None]
  - Right ventricular hypertrophy [None]
  - Off label use [None]
  - Anaemia [None]
  - Oedema peripheral [None]

NARRATIVE: CASE EVENT DATE: 201407
